FAERS Safety Report 10181880 (Version 1)
Quarter: 2014Q2

REPORT INFORMATION
  Report Type: Spontaneous
  Country: US (occurrence: US)
  Receive Date: 20140519
  Receipt Date: 20140519
  Transmission Date: 20141212
  Serious: No
  Sender: FDA-Public Use
  Company Number: US-ASTRAZENECA-2013SE46535

PATIENT
  Age: 86 Year
  Sex: Female
  Weight: 56.7 kg

DRUGS (3)
  1. ATACAND [Suspect]
     Indication: HYPERTENSION
     Route: 048
     Dates: start: 200511, end: 2005
  2. ATACAND HCT [Suspect]
     Indication: HYPERTENSION
     Dosage: 16MG/12.5MG DAILY
     Route: 048
     Dates: start: 2005
  3. BABY ASPIRIN [Concomitant]
     Indication: DRUG THERAPY
     Dates: start: 1993

REACTIONS (4)
  - Joint swelling [Unknown]
  - Blood glucose fluctuation [Unknown]
  - Visual impairment [Unknown]
  - Weight abnormal [Unknown]
